FAERS Safety Report 5407311-1 (Version None)
Quarter: 2007Q3

REPORT INFORMATION
  Report Type: 
  Country: None (occurrence: None)
  Receive Date: 20070807
  Receipt Date: 20070730
  Transmission Date: 20080115
  Serious: Yes (Hospitalization)
  Sender: FDA-Public Use
  Company Number: JP-ROCHE-491678

PATIENT
  Age: 57 Year
  Sex: Male
  Weight: 72.1 kg

DRUGS (6)
  1. CAPECITABINE [Suspect]
     Route: 048
     Dates: start: 20070426, end: 20070530
  2. CAPECITABINE [Suspect]
     Route: 048
     Dates: start: 20061011, end: 20070405
  3. CAPECITABINE [Suspect]
     Dosage: GIVEN ON DAYS 1-15 ON EACH 3-WEEK-CYCLE.
     Route: 048
     Dates: start: 20060721
  4. BEVACIZUMAB [Suspect]
     Dosage: GIVEN ON DAY ONE OF EACH 3-WEEK-CYCLE.
     Route: 042
     Dates: start: 20060721
  5. BEVACIZUMAB [Suspect]
     Dosage: RECALCULATED DOSE DUE TO BODY WEIGHT INCREASE.
     Route: 042
     Dates: start: 20070126, end: 20070516
  6. OXALIPLATIN [Suspect]
     Dosage: GIVEN ON DAY ONE OF EACH 3-WEEK-CYCLE.
     Route: 042
     Dates: start: 20060721, end: 20070516

REACTIONS (2)
  - DIARRHOEA [None]
  - ENTERITIS INFECTIOUS [None]
